FAERS Safety Report 10927785 (Version 1)
Quarter: 2015Q1

REPORT INFORMATION
  Report Type: Spontaneous
  Country: US (occurrence: US)
  Receive Date: 20150319
  Receipt Date: 20150319
  Transmission Date: 20150721
  Serious: Yes (Other)
  Sender: FDA-Public Use
  Company Number: US-AMGEN-USASP2015024926

PATIENT
  Age: 58 Year
  Sex: Female

DRUGS (1)
  1. ENBREL [Suspect]
     Active Substance: ETANERCEPT
     Indication: RHEUMATOID ARTHRITIS
     Dosage: QWK
     Route: 065
     Dates: start: 201501, end: 20150227

REACTIONS (5)
  - Panic attack [Not Recovered/Not Resolved]
  - Emotional distress [Not Recovered/Not Resolved]
  - Depression suicidal [Recovered/Resolved]
  - Headache [Recovered/Resolved]
  - Anxiety [Not Recovered/Not Resolved]

NARRATIVE: CASE EVENT DATE: 201501
